FAERS Safety Report 4695154-6 (Version None)
Quarter: 2005Q2

REPORT INFORMATION
  Report Type: 
  Country: None (occurrence: None)
  Receive Date: 20050614
  Receipt Date: 20050128
  Transmission Date: 20051028
  Serious: No
  Sender: FDA-Public Use
  Company Number: USA050189460

PATIENT
  Age: 48 Year
  Sex: Female

DRUGS (1)
  1. CIALIS [Suspect]
     Indication: RAYNAUD'S PHENOMENON
     Dosage: 10 MG
     Dates: start: 20050123

REACTIONS (1)
  - HEADACHE [None]
